FAERS Safety Report 17901509 (Version 2)
Quarter: 2020Q3

REPORT INFORMATION
  Report Type: Spontaneous
  Country: SE (occurrence: SE)
  Receive Date: 20200616
  Receipt Date: 20200707
  Transmission Date: 20201103
  Serious: Yes (Life-Threatening, Hospitalization)
  Sender: FDA-Public Use
  Company Number: SE-PFIZER INC-2020230424

PATIENT
  Age: 31 Year
  Sex: Female
  Weight: 54 kg

DRUGS (13)
  1. ASACOL [Concomitant]
     Active Substance: MESALAMINE
     Indication: COLITIS ULCERATIVE
     Dosage: 2.4 G, 2X/DAY
     Dates: start: 20170517
  2. PROPAVAN [Concomitant]
     Active Substance: PROPIOMAZINE
     Indication: INSOMNIA
     Dosage: 25 MG, AS NEEDED
     Dates: start: 20190906
  3. NEXPLANON [Concomitant]
     Active Substance: ETONOGESTREL
     Indication: CONTRACEPTION
     Dosage: 68 MG
     Dates: start: 20160427
  4. IMODIUM [Concomitant]
     Active Substance: LOPERAMIDE HYDROCHLORIDE
     Indication: DIARRHOEA
     Dosage: 2 MG, AS NEEDED
     Dates: start: 20170613
  5. VALDOXAN [Concomitant]
     Active Substance: AGOMELATINE
     Indication: DEPRESSION
     Dosage: 25 MG, DAILY
     Dates: start: 20190116
  6. THERALEN [Concomitant]
     Active Substance: TRIMEPRAZINE
     Indication: INSOMNIA
     Dosage: 1?2 TABLETS 5 MG, AS NEEDED
     Dates: start: 20191129
  7. CITODON [CODEINE PHOSPHATE HEMIHYDRATE;PARACETAMOL] [Concomitant]
     Active Substance: ACETAMINOPHEN\CODEINE PHOSPHATE
     Indication: PAIN
     Dosage: 1 DF, AS NEEDED
     Dates: start: 20130516
  8. SOLVEZINK [Concomitant]
     Indication: ZINC DEFICIENCY
     Dosage: 45 MG, 2X/DAY
     Dates: start: 20190907
  9. ESCITALOPRAM [Concomitant]
     Active Substance: ESCITALOPRAM OXALATE
     Indication: DEPRESSION
     Dosage: 20 MG, DAILY
     Dates: start: 20180626
  10. XELJANZ [Suspect]
     Active Substance: TOFACITINIB CITRATE
     Dosage: 5 MG, 2X/DAY
     Dates: start: 20200414, end: 20200610
  11. STILNOCT [Concomitant]
     Active Substance: ZOLPIDEM TARTRATE
     Indication: INSOMNIA
     Dosage: 5 MG, AS NEEDED
     Dates: start: 20190413
  12. XELJANZ [Suspect]
     Active Substance: TOFACITINIB CITRATE
     Indication: COLITIS ULCERATIVE
     Dosage: 10 MG, 2X/DAY
     Route: 048
     Dates: start: 20200104, end: 20200414
  13. OXASCAND [Concomitant]
     Active Substance: OXAZEPAM
     Indication: ANXIETY
     Dosage: 10 MG, AS NEEDED
     Dates: start: 20190116

REACTIONS (7)
  - Clostridium difficile infection [Recovered/Resolved]
  - Extremity necrosis [Not Recovered/Not Resolved]
  - Portal vein thrombosis [Not Recovered/Not Resolved]
  - Iron deficiency anaemia [Not Recovered/Not Resolved]
  - Aortic thrombosis [Not Recovered/Not Resolved]
  - Peripheral embolism [Not Recovered/Not Resolved]
  - Splenic thrombosis [Not Recovered/Not Resolved]

NARRATIVE: CASE EVENT DATE: 20200401
